FAERS Safety Report 7197342-6 (Version None)
Quarter: 2010Q4

REPORT INFORMATION
  Report Type: 
  Country: None (occurrence: None)
  Receive Date: 20101227
  Receipt Date: 20101217
  Transmission Date: 20110411
  Serious: Yes (Hospitalization)
  Sender: FDA-Public Use
  Company Number: FR-PFIZER INC-2010174232

PATIENT
  Age: 49 Year
  Sex: Female

DRUGS (3)
  1. DALACINE [Suspect]
     Dosage: UNK
     Route: 042
     Dates: start: 20100930, end: 20101011
  2. CLAMOXYL [Suspect]
     Dosage: 1 G
     Route: 042
     Dates: start: 20100927, end: 20100930
  3. RIFADINE [Suspect]
     Dosage: 600 MG
     Route: 042
     Dates: start: 20100930, end: 20101009

REACTIONS (3)
  - CONDITION AGGRAVATED [None]
  - EOSINOPHILIA [None]
  - RASH [None]
